FAERS Safety Report 19108550 (Version 1)
Quarter: 2021Q2

REPORT INFORMATION
  Report Type: Spontaneous
  Country: US (occurrence: US)
  Receive Date: 20210408
  Receipt Date: 20210408
  Transmission Date: 20210717
  Serious: Yes (Other)
  Sender: FDA-Public Use
  Company Number: US-ASTELLAS-2021US012435

PATIENT
  Age: 6 Decade
  Sex: Male

DRUGS (2)
  1. PADCEV [Suspect]
     Active Substance: ENFORTUMAB VEDOTIN-EJFV
     Indication: PRODUCT USED FOR UNKNOWN INDICATION
     Dosage: UNK, CYCLIC
     Route: 065
     Dates: start: 202012
  2. PADCEV [Suspect]
     Active Substance: ENFORTUMAB VEDOTIN-EJFV
     Dosage: UNK, CYCLIC (ADJUSTED DOSING TO 2 WEEKS ON ONE WEEK OFF, 2 WEEKS ONE OFF PER CYCLE)
     Route: 065

REACTIONS (5)
  - Weight decreased [Unknown]
  - Decreased appetite [Unknown]
  - Neuropathy peripheral [Unknown]
  - Fall [Unknown]
  - Dysgeusia [Unknown]
